FAERS Safety Report 6496215-1 (Version None)
Quarter: 2009Q4

REPORT INFORMATION
  Report Type: 
  Country: None (occurrence: None)
  Receive Date: 20091214
  Receipt Date: 20091026
  Transmission Date: 20100525
  Serious: No
  Sender: FDA-Public Use
  Company Number: US-BRISTOL-MYERS SQUIBB COMPANY-14830871

PATIENT
  Age: 36 Year
  Sex: Female
  Weight: 61 kg

DRUGS (7)
  1. ABILIFY [Suspect]
     Indication: BIPOLAR II DISORDER
     Dosage: 1 DF=15-30MG
  2. ABILIFY [Suspect]
     Indication: SCHIZOAFFECTIVE DISORDER
     Dosage: 1 DF=15-30MG
  3. ABILIFY [Suspect]
     Indication: POST-TRAUMATIC STRESS DISORDER
     Dosage: 1 DF=15-30MG
  4. ABILIFY [Suspect]
     Indication: DEPRESSION
     Dosage: 1 DF=15-30MG
  5. ZOLOFT [Concomitant]
  6. TYLENOL (CAPLET) [Concomitant]
  7. ED A-HIST [Concomitant]

REACTIONS (2)
  - AMNESIA [None]
  - JUDGEMENT IMPAIRED [None]
